FAERS Safety Report 5527586-8 (Version None)
Quarter: 2007Q4

REPORT INFORMATION
  Report Type: 
  Country: None (occurrence: None)
  Receive Date: 20071128
  Receipt Date: 20071119
  Transmission Date: 20080405
  Serious: Yes (Life-Threatening, Hospitalization, Other)
  Sender: FDA-Public Use
  Company Number: US-ELI_LILLY_AND_COMPANY-US200711004322

PATIENT
  Sex: Female

DRUGS (11)
  1. FORTEO [Suspect]
     Dosage: UNK, UNK
     Dates: start: 20070301
  2. SYNTHROID [Concomitant]
     Dosage: 0.88 UNK, UNK
  3. ZOCOR [Concomitant]
  4. BETAPACE [Concomitant]
     Dosage: 80 MG, 2/D
  5. LEXAPRO [Concomitant]
     Dosage: 10 UNK, UNK
  6. ALDACTONE [Concomitant]
  7. LASIX [Concomitant]
  8. K-DUR 10 [Concomitant]
  9. FENTANYL [Concomitant]
  10. NITROGLYCERIN [Concomitant]
     Dosage: UNK, AS NEEDED
  11. HYDROCORTISON [Concomitant]

REACTIONS (6)
  - CARDIO-RESPIRATORY ARREST [None]
  - COLITIS [None]
  - DEHYDRATION [None]
  - LIMB OPERATION [None]
  - MYOCARDIAL INFARCTION [None]
  - STAPHYLOCOCCAL INFECTION [None]
